FAERS Safety Report 6544182-4 (Version None)
Quarter: 2010Q1

REPORT INFORMATION
  Report Type: 
  Country: None (occurrence: None)
  Receive Date: 20100119
  Receipt Date: 20100119
  Transmission Date: 20100710
  Serious: Yes (Other)
  Sender: FDA-Public Use
  Company Number: None

PATIENT
  Age: 34 Year
  Sex: Female
  Weight: 81.6475 kg

DRUGS (1)
  1. TYLENOL [Suspect]
     Indication: HEADACHE
     Dosage: 1-  500 MG CAPLETS EVERY 4-6 HOURS PO
     Route: 048
     Dates: start: 20091218, end: 20100103

REACTIONS (7)
  - ASTHENIA [None]
  - HEADACHE [None]
  - HOT FLUSH [None]
  - MIGRAINE [None]
  - NAUSEA [None]
  - NO THERAPEUTIC RESPONSE [None]
  - PRODUCT QUALITY ISSUE [None]
